FAERS Safety Report 15099737 (Version 1)
Quarter: 2018Q3

REPORT INFORMATION
  Report Type: Report from Study
  Country: US (occurrence: US)
  Receive Date: 20180702
  Receipt Date: 20180702
  Transmission Date: 20181010
  Serious: No
  Sender: FDA-Public Use
  Company Number: US-AMGEN-USASL2018086768

PATIENT
  Age: 69 Year
  Sex: Female

DRUGS (1)
  1. ENBREL [Suspect]
     Active Substance: ETANERCEPT
     Indication: RHEUMATOID ARTHRITIS
     Dosage: 50 MG, QWK
     Route: 065

REACTIONS (9)
  - Myalgia [Unknown]
  - Dyspnoea [Unknown]
  - Chest pain [Unknown]
  - Dry eye [Unknown]
  - Nasal dryness [Unknown]
  - Vasculitis [Unknown]
  - Dry mouth [Unknown]
  - Injection site reaction [Unknown]
  - Oropharyngeal pain [Unknown]
